FAERS Safety Report 10098817 (Version 1)
Quarter: 2014Q2

REPORT INFORMATION
  Report Type: Spontaneous
  Country: US (occurrence: US)
  Receive Date: 20140423
  Receipt Date: 20140423
  Transmission Date: 20141212
  Serious: No
  Sender: FDA-Public Use
  Company Number: US-LUNDBECK-DKLU1098806

PATIENT
  Age: 41 Year
  Sex: Male

DRUGS (5)
  1. ONFI [Suspect]
     Indication: EPILEPSY
     Route: 048
     Dates: start: 201310, end: 201312
  2. ONFI [Suspect]
     Route: 048
     Dates: start: 201402
  3. ONFI [Suspect]
     Route: 048
     Dates: start: 201402
  4. VIMPAT [Concomitant]
     Indication: PRODUCT USED FOR UNKNOWN INDICATION
  5. ZONEGRAN [Concomitant]
     Indication: PRODUCT USED FOR UNKNOWN INDICATION

REACTIONS (1)
  - Rash [Recovered/Resolved]
